FAERS Safety Report 13237027 (Version 2)
Quarter: 2017Q1

REPORT INFORMATION
  Report Type: Spontaneous
  Country: US (occurrence: US)
  Receive Date: 20170215
  Receipt Date: 20170217
  Transmission Date: 20170428
  Serious: Yes (Hospitalization, Other)
  Sender: FDA-Public Use
  Company Number: US-SA-2016SA225151

PATIENT
  Age: 41 Year
  Sex: Female

DRUGS (1)
  1. LEMTRADA [Suspect]
     Active Substance: ALEMTUZUMAB
     Route: 042

REACTIONS (9)
  - Platelet count decreased [Unknown]
  - Lip haemorrhage [Unknown]
  - Immune thrombocytopenic purpura [Unknown]
  - Hypoaesthesia [Unknown]
  - Chapped lips [Unknown]
  - Nasopharyngitis [Unknown]
  - Paraesthesia [Unknown]
  - Sensory loss [Unknown]
  - Loss of consciousness [Unknown]
